FAERS Safety Report 15302334 (Version 1)
Quarter: 2018Q3

REPORT INFORMATION
  Report Type: Spontaneous
  Country: US (occurrence: US)
  Receive Date: 20180821
  Receipt Date: 20180821
  Transmission Date: 20181010
  Serious: Yes (Other)
  Sender: FDA-Public Use
  Company Number: US-DSJP-DSU-2017-146422

PATIENT

DRUGS (2)
  1. TRIBENZOR [Suspect]
     Active Substance: AMLODIPINE BESYLATE\HYDROCHLOROTHIAZIDE\OLMESARTAN MEDOXOMIL
     Indication: ESSENTIAL HYPERTENSION
     Dosage: 40?5?12.5 MG, QD
     Dates: start: 20110128, end: 20170803
  2. TRIBENZOR [Suspect]
     Active Substance: AMLODIPINE BESYLATE\HYDROCHLOROTHIAZIDE\OLMESARTAN MEDOXOMIL
     Dosage: 40?10?12.5 MG, QD
     Dates: start: 20110128, end: 20170803

REACTIONS (5)
  - Barrett^s oesophagus [Unknown]
  - Gastrooesophageal reflux disease [Recovering/Resolving]
  - Diarrhoea [Recovering/Resolving]
  - Chronic kidney disease [Unknown]
  - Weight decreased [Unknown]

NARRATIVE: CASE EVENT DATE: 201310
